FAERS Safety Report 8989924 (Version 1)
Quarter: 2012Q4

REPORT INFORMATION
  Report Type: 
  Country: GB (occurrence: GB)
  Receive Date: 20121228
  Receipt Date: 20121228
  Transmission Date: 20130627
  Serious: Yes (Other)
  Sender: FDA-Public Use
  Company Number: GB-MERCK-1212GBR008965

PATIENT
  Age: 50 Year
  Sex: Male

DRUGS (3)
  1. PEGINTERFERON ALFA-2B [Suspect]
     Indication: HEPATITIS C
     Dosage: UNK
  2. RIBAVIRIN [Suspect]
     Indication: HEPATITIS C
  3. TELAPREVIR [Suspect]
     Indication: HEPATITIS C
     Route: 048

REACTIONS (1)
  - Rectal haemorrhage [Recovering/Resolving]
